FAERS Safety Report 10154740 (Version 1)
Quarter: 2014Q2

REPORT INFORMATION
  Report Type: Spontaneous
  Country: US (occurrence: None)
  Receive Date: 20140502
  Receipt Date: 20140502
  Transmission Date: 20141212
  Serious: Yes (Congenital Anomaly)
  Sender: FDA-Public Use
  Company Number: 2014P1003573

PATIENT
  Sex: Female

DRUGS (1)
  1. PHENYTOIN [Suspect]
     Route: 064

REACTIONS (3)
  - Hypoplastic left heart syndrome [None]
  - Foetal anticonvulsant syndrome [None]
  - Foetal exposure during pregnancy [None]
